FAERS Safety Report 14998959 (Version 1)
Quarter: 2018Q2

REPORT INFORMATION
  Report Type: Spontaneous
  Country: CH (occurrence: CH)
  Receive Date: 20180612
  Receipt Date: 20180612
  Transmission Date: 20180711
  Serious: Yes (Other)
  Sender: FDA-Public Use
  Company Number: CH-ASTRAZENECA-2018SE73818

PATIENT
  Age: 15 Year
  Sex: Female

DRUGS (3)
  1. XYZAL [Concomitant]
     Active Substance: LEVOCETIRIZINE DIHYDROCHLORIDE
     Route: 048
     Dates: start: 2014
  2. MOMETASONE [Concomitant]
     Active Substance: MOMETASONE
     Route: 045
  3. VANNAIR [Suspect]
     Active Substance: BUDESONIDE\FORMOTEROL FUMARATE DIHYDRATE
     Route: 055
     Dates: start: 2014

REACTIONS (2)
  - Delayed menarche [Not Recovered/Not Resolved]
  - Body height below normal [Not Recovered/Not Resolved]

NARRATIVE: CASE EVENT DATE: 2018
